FAERS Safety Report 5244795-6 (Version None)
Quarter: 2007Q1

REPORT INFORMATION
  Report Type: 
  Country: None (occurrence: None)
  Receive Date: 20061201
  Receipt Date: 20060811
  Transmission Date: 20070707
  Serious: No
  Sender: FDA-Public Use
  Company Number: 2006PV019286

PATIENT
  Age: 60 Year
  Sex: Female
  Weight: 117.9352 kg

DRUGS (9)
  1. BYETTA [Suspect]
     Indication: DIABETES MELLITUS NON-INSULIN-DEPENDENT
     Dosage: SEE IMAGE
     Route: 058
     Dates: start: 20060501, end: 20060501
  2. BYETTA [Suspect]
     Indication: DIABETES MELLITUS NON-INSULIN-DEPENDENT
     Dosage: SEE IMAGE
     Route: 058
     Dates: start: 20060710
  3. ACTOS /USA/ [Concomitant]
  4. NIFEDIPINE [Concomitant]
  5. METOPROLOL SUCCINATE [Concomitant]
  6. QUINAPRIL [Concomitant]
  7. MINOXIDIL [Concomitant]
  8. TENEX [Concomitant]
  9. DIOVAN HCT [Concomitant]

REACTIONS (1)
  - PALPITATIONS [None]
